FAERS Safety Report 14913758 (Version 1)
Quarter: 2018Q2

REPORT INFORMATION
  Report Type: Spontaneous
  Country: US (occurrence: US)
  Receive Date: 20180518
  Receipt Date: 20180518
  Transmission Date: 20180711
  Serious: Yes (Hospitalization, Other)
  Sender: FDA-Public Use
  Company Number: US-OTSUKA-2018_012623

PATIENT
  Age: 38 Year
  Sex: Female

DRUGS (10)
  1. REXULTI [Suspect]
     Active Substance: BREXPIPRAZOLE
     Dosage: 0.5 MG, UNK
     Route: 065
  2. REXULTI [Suspect]
     Active Substance: BREXPIPRAZOLE
     Dosage: 0.5 MG, QD
     Route: 065
     Dates: start: 201804
  3. VERAPAMIL [Concomitant]
     Active Substance: VERAPAMIL HYDROCHLORIDE
     Indication: PRODUCT USED FOR UNKNOWN INDICATION
     Dosage: 180 MG, QD
     Route: 065
  4. MAXALT [Concomitant]
     Active Substance: RIZATRIPTAN BENZOATE
     Indication: MIGRAINE
     Dosage: UNK (AS NEEDED, TAKING REGULARLY)
     Route: 065
  5. ATIVAN [Concomitant]
     Active Substance: LORAZEPAM
     Indication: PRODUCT USED FOR UNKNOWN INDICATION
     Dosage: UNK (AS NEEDED)
     Route: 065
  6. REXULTI [Suspect]
     Active Substance: BREXPIPRAZOLE
     Dosage: 1 MG, QD
     Route: 065
  7. LITHIUM. [Concomitant]
     Active Substance: LITHIUM
     Indication: PRODUCT USED FOR UNKNOWN INDICATION
     Dosage: 900 MG, QD (AT BEDTIME)
     Route: 065
  8. APRI [Concomitant]
     Active Substance: DESOGESTREL\ETHINYL ESTRADIOL
     Indication: CONTRACEPTION
     Dosage: UNK
     Route: 065
  9. REXULTI [Suspect]
     Active Substance: BREXPIPRAZOLE
     Indication: BIPOLAR DISORDER
     Dosage: 1 MG, QD
     Route: 065
     Dates: start: 201805, end: 20180513
  10. LEVOTHYROXINE. [Concomitant]
     Active Substance: LEVOTHYROXINE
     Indication: PRODUCT USED FOR UNKNOWN INDICATION
     Dosage: 25 ?G, UNK
     Route: 065

REACTIONS (4)
  - Product use in unapproved indication [Unknown]
  - Hypertriglyceridaemia [Unknown]
  - Feeling abnormal [Unknown]
  - Pancreatitis [Unknown]

NARRATIVE: CASE EVENT DATE: 201804
